FAERS Safety Report 14754086 (Version 1)
Quarter: 2018Q2

REPORT INFORMATION
  Report Type: Report from Study
  Country: DE (occurrence: DE)
  Receive Date: 20180412
  Receipt Date: 20180412
  Transmission Date: 20180711
  Serious: Yes (Death, Other)
  Sender: FDA-Public Use
  Company Number: DE-PFIZER INC-2018149869

PATIENT
  Age: 60 Year
  Sex: Male

DRUGS (6)
  1. ZAVEDOS [Suspect]
     Active Substance: IDARUBICIN
     Indication: PLASMA CELL MYELOMA
     Dosage: 8 MG/M2, DAILY, (ON DAYS 1-4, TOTAL DOSE 36 MG/M2/COURSE)
  2. MELPHALAN. [Suspect]
     Active Substance: MELPHALAN
     Indication: PLASMA CELL MYELOMA
     Dosage: UNK (INTENSIVE PRE-TREATMENT WITH 15 COURSES)
  3. PAMIDRONATE [Concomitant]
     Active Substance: PAMIDRONATE DISODIUM
     Dosage: 90 MG, UNK (EVERY 4 WEEKS)
  4. VINCRISTINE SULFATE. [Suspect]
     Active Substance: VINCRISTINE SULFATE
     Indication: PLASMA CELL MYELOMA
     Dosage: UNK, (1.6 MG/M2, MAX 2MG, ON DAY 1)
     Route: 040
  5. RANITIDINE. [Concomitant]
     Active Substance: RANITIDINE
     Dosage: UNK
  6. DEXAMETHASONE. [Suspect]
     Active Substance: DEXAMETHASONE
     Indication: PLASMA CELL MYELOMA
     Dosage: 40 MG, DAILY (ON DAYS 1-4, 9-12, 17-20)
     Route: 048

REACTIONS (2)
  - Neutropenic sepsis [Fatal]
  - Neutropenia [Unknown]
